FAERS Safety Report 21553310 (Version 1)
Quarter: 2022Q4

REPORT INFORMATION
  Report Type: Spontaneous
  Country: JP (occurrence: JP)
  Receive Date: 20221104
  Receipt Date: 20221104
  Transmission Date: 20230113
  Serious: Yes (Other)
  Sender: FDA-Public Use
  Company Number: JP-MYLANLABS-2022M1121450

PATIENT
  Age: 7 Decade
  Sex: Female

DRUGS (1)
  1. ADALIMUMAB [Suspect]
     Active Substance: ADALIMUMAB
     Indication: Scleritis
     Dosage: 40 MILLIGRAM, Q2W
     Route: 058

REACTIONS (1)
  - Drug ineffective for unapproved indication [Not Recovered/Not Resolved]
